FAERS Safety Report 4649391-7 (Version None)
Quarter: 2005Q2

REPORT INFORMATION
  Report Type: 
  Country: None (occurrence: None)
  Receive Date: 20050427
  Receipt Date: 20050208
  Transmission Date: 20051028
  Serious: Yes (Hospitalization)
  Sender: FDA-Public Use
  Company Number: F01200500222

PATIENT
  Age: 62 Year
  Sex: Female

DRUGS (12)
  1. OXALIPLATIN [Suspect]
     Indication: COLORECTAL CANCER METASTATIC
     Dosage: 172 MG Q3W, INTRAVENOUS NOS
     Route: 042
     Dates: start: 20050118, end: 20050118
  2. CAPECITABINE [Suspect]
     Dosage: 1300 MG TWICE A DAY FOR 2 WEEKS, ORAL
     Route: 048
     Dates: start: 20050118, end: 20050126
  3. (BEVACIZUMAB OR PLACEBO) [Suspect]
     Dosage: Q3W, 1 UNIT Q3W; INTRAVENOUS NOS
     Route: 042
     Dates: start: 20050118, end: 20050118
  4. LOSEC (OMEPRAZOLE) [Concomitant]
  5. PROCHLORPERAZINE [Concomitant]
  6. XANAX [Concomitant]
  7. PREMARIN [Concomitant]
  8. LIPITOR [Concomitant]
  9. DILAUDID [Concomitant]
  10. PROVAS (VALSARTAN) [Concomitant]
  11. TYLENOL [Concomitant]
  12. PANTOPRAZOLE SODIUM [Concomitant]

REACTIONS (3)
  - AMAUROSIS [None]
  - CEREBRAL THROMBOSIS [None]
  - RETINAL VEIN THROMBOSIS [None]
